FAERS Safety Report 10242321 (Version 4)
Quarter: 2015Q2

REPORT INFORMATION
  Report Type: Spontaneous
  Country: US (occurrence: US)
  Receive Date: 20140617
  Receipt Date: 20150506
  Transmission Date: 20150821
  Serious: Yes (Disabling, Other)
  Sender: FDA-Public Use
  Company Number: US-009507513-1406USA007419

PATIENT
  Sex: Male
  Weight: 90.34 kg

DRUGS (1)
  1. PROPECIA [Suspect]
     Active Substance: FINASTERIDE
     Indication: ALOPECIA
     Dosage: 1 MG, QD
     Route: 048
     Dates: start: 20040224, end: 20050712

REACTIONS (37)
  - Skin lesion [Unknown]
  - Pruritus [Unknown]
  - Sexual dysfunction [Not Recovered/Not Resolved]
  - Erectile dysfunction [Not Recovered/Not Resolved]
  - Amnesia [Not Recovered/Not Resolved]
  - Dandruff [Unknown]
  - Erythema [Unknown]
  - Wisdom teeth removal [Unknown]
  - Measles [Unknown]
  - Depression [Not Recovered/Not Resolved]
  - Ejaculation disorder [Not Recovered/Not Resolved]
  - Ejaculation failure [Not Recovered/Not Resolved]
  - Memory impairment [Not Recovered/Not Resolved]
  - Temporomandibular joint syndrome [Unknown]
  - Weight increased [Unknown]
  - Thirst [Unknown]
  - Hypertension [Unknown]
  - Hyperlipidaemia [Unknown]
  - Mumps [Unknown]
  - Feeling abnormal [Not Recovered/Not Resolved]
  - Dry skin [Unknown]
  - Stress at work [Unknown]
  - Skin disorder [Unknown]
  - Cognitive disorder [Not Recovered/Not Resolved]
  - Libido decreased [Not Recovered/Not Resolved]
  - Skin candida [Unknown]
  - Disturbance in attention [Unknown]
  - Snoring [Unknown]
  - Abscess [Unknown]
  - Varicella [Unknown]
  - Rash [Unknown]
  - Suicidal ideation [Not Recovered/Not Resolved]
  - Fatigue [Unknown]
  - Abdominal pain upper [Unknown]
  - Panic attack [Unknown]
  - Anxiety [Not Recovered/Not Resolved]
  - Gastrointestinal ulcer [Unknown]

NARRATIVE: CASE EVENT DATE: 2005
